FAERS Safety Report 5979496-X (Version None)
Quarter: 2008Q4

REPORT INFORMATION
  Report Type: 
  Country: None (occurrence: None)
  Receive Date: 20081126
  Receipt Date: 20080828
  Transmission Date: 20090506
  Serious: Yes (Hospitalization)
  Sender: FDA-Public Use
  Company Number: 2008BH008472

PATIENT
  Sex: Male
  Weight: 101.6057 kg

DRUGS (6)
  1. DIANEAL [Suspect]
     Indication: PERITONEAL DIALYSIS
     Dosage: IP : IP
     Route: 033
     Dates: end: 20080101
  2. DIANEAL [Suspect]
     Indication: PERITONEAL DIALYSIS
     Dosage: IP : IP
     Route: 033
     Dates: start: 20051025
  3. DIANEAL [Suspect]
     Indication: PERITONEAL DIALYSIS
     Dosage: IP : IP
     Route: 033
     Dates: end: 20080101
  4. DIANEAL [Suspect]
     Indication: PERITONEAL DIALYSIS
     Dosage: IP : IP
     Route: 033
     Dates: start: 20051025
  5. EXTRANEAL [Suspect]
     Indication: PERITONEAL DIALYSIS
     Dosage: IP
     Route: 033
     Dates: end: 20080101
  6. EXTRANEAL [Suspect]
     Indication: PERITONEAL DIALYSIS
     Dosage: IP
     Route: 033
     Dates: start: 20051025

REACTIONS (1)
  - PERITONITIS BACTERIAL [None]
